FAERS Safety Report 13313385 (Version 2)
Quarter: 2017Q1

REPORT INFORMATION
  Report Type: Spontaneous
  Country: US (occurrence: US)
  Receive Date: 20170309
  Receipt Date: 20170310
  Transmission Date: 20170428
  Serious: Yes (Other)
  Sender: FDA-Public Use
  Company Number: US-TELIGENT, INC-IGIL20170071

PATIENT
  Sex: Female

DRUGS (5)
  1. RANITIDINE HYDROCHLORIDE. [Suspect]
     Active Substance: RANITIDINE HYDROCHLORIDE
     Indication: PRODUCT USED FOR UNKNOWN INDICATION
     Route: 065
  2. GAVISCON [Suspect]
     Active Substance: ALUMINUM HYDROXIDE\MAGNESIUM CARBONATE
     Indication: PRODUCT USED FOR UNKNOWN INDICATION
     Route: 065
     Dates: start: 1996
  3. PREVACID [Suspect]
     Active Substance: LANSOPRAZOLE
     Indication: GASTROOESOPHAGEAL REFLUX DISEASE
     Route: 065
     Dates: start: 1997
  4. PREVACID [Suspect]
     Active Substance: LANSOPRAZOLE
     Indication: DYSPEPSIA
  5. MAALOX ANTACID [Suspect]
     Active Substance: ALUMINUM HYDROXIDE\DIMETHICONE\MAGNESIUM HYDROXIDE
     Indication: PRODUCT USED FOR UNKNOWN INDICATION
     Route: 065
     Dates: start: 1996

REACTIONS (3)
  - Drug ineffective [Unknown]
  - Cholecystectomy [Unknown]
  - Burning sensation [Unknown]

NARRATIVE: CASE EVENT DATE: 1997
